FAERS Safety Report 6494182-8 (Version None)
Quarter: 2009Q4

REPORT INFORMATION
  Report Type: 
  Country: None (occurrence: None)
  Receive Date: 20091214
  Receipt Date: 20090115
  Transmission Date: 20100525
  Serious: No
  Sender: FDA-Public Use
  Company Number: US-BRISTOL-MYERS SQUIBB COMPANY-14473375

PATIENT
  Age: 2 Decade
  Sex: Female

DRUGS (1)
  1. ABILIFY [Suspect]
     Indication: SCHIZOAFFECTIVE DISORDER
     Dosage: STARTED WITH 15MG DAILY AND TITRATED UP TO 30MG DAILY INTERRUPTED + RESTARTED AT 30MG DAILY

REACTIONS (2)
  - DYSPNOEA [None]
  - GENERALISED OEDEMA [None]
